FAERS Safety Report 4286123-9 (Version None)
Quarter: 2004Q1

REPORT INFORMATION
  Report Type: 
  Country: None (occurrence: None)
  Receive Date: 20040120
  Receipt Date: 20031103
  Transmission Date: 20041129
  Serious: Yes (Hospitalization)
  Sender: FDA-Public Use
  Company Number: ENZ-ABE-152

PATIENT
  Age: 39 Year
  Sex: Female
  Weight: 62.5 kg

DRUGS (3)
  1. ABELCET [Suspect]
     Indication: ANTIFUNGAL PROPHYLAXIS
     Dosage: 5 MG/KG QD IV
     Route: 042
     Dates: start: 20031014, end: 20031101
  2. CYCLOSPORINE [Concomitant]
  3. AMIKACIN [Concomitant]

REACTIONS (3)
  - BLOOD CREATININE INCREASED [None]
  - BLOOD GLUCOSE INCREASED [None]
  - BLOOD UREA INCREASED [None]
